FAERS Safety Report 7092659-8 (Version None)
Quarter: 2010Q4

REPORT INFORMATION
  Report Type: 
  Country: None (occurrence: None)
  Receive Date: 20101108
  Receipt Date: 20101108
  Transmission Date: 20110411
  Serious: Yes (Other)
  Sender: FDA-Public Use
  Company Number: None

PATIENT
  Age: 22 Year
  Sex: Male
  Weight: 133.8111 kg

DRUGS (2)
  1. OXYCONTIN [Suspect]
     Indication: INTERVERTEBRAL DISC PROTRUSION
     Dosage: 80MG 3X DAILY EVERY 8 HOURS PO OVER 1 YEAR
     Route: 048
  2. OXYCONTIN [Suspect]
     Indication: PROCEDURAL PAIN
     Dosage: 80MG 3X DAILY EVERY 8 HOURS PO OVER 1 YEAR
     Route: 048

REACTIONS (2)
  - DRUG INEFFECTIVE [None]
  - PRODUCT FORMULATION ISSUE [None]
